FAERS Safety Report 13948605 (Version 1)
Quarter: 2017Q3

REPORT INFORMATION
  Report Type: Spontaneous
  Country: US (occurrence: US)
  Receive Date: 20170908
  Receipt Date: 20170908
  Transmission Date: 20171128
  Serious: Yes (Hospitalization)
  Sender: FDA-Public Use
  Company Number: US-SA-2017SA165412

PATIENT
  Age: 52 Year
  Sex: Female

DRUGS (2)
  1. ALIROCUMAB PREFILLED PEN [Suspect]
     Active Substance: ALIROCUMAB
     Dates: start: 201708
  2. PRALUENT [Suspect]
     Active Substance: ALIROCUMAB
     Route: 058
     Dates: start: 201708

REACTIONS (6)
  - Cough [Unknown]
  - Menorrhagia [Unknown]
  - Laryngitis [Unknown]
  - Aphonia [Unknown]
  - Folliculitis [Unknown]
  - Influenza [Unknown]

NARRATIVE: CASE EVENT DATE: 201708
